FAERS Safety Report 12157737 (Version 1)
Quarter: 2016Q1

REPORT INFORMATION
  Report Type: Spontaneous
  Country: US (occurrence: US)
  Receive Date: 20160308
  Receipt Date: 20160308
  Transmission Date: 20160526
  Serious: No
  Sender: FDA-Public Use
  Company Number: US-JNJFOC-20141104242

PATIENT
  Age: 70 Year
  Sex: Female

DRUGS (1)
  1. IMBRUVICA [Suspect]
     Active Substance: IBRUTINIB
     Indication: CHRONIC LYMPHOCYTIC LEUKAEMIA
     Route: 048
     Dates: start: 20141011, end: 2014

REACTIONS (4)
  - Pain of skin [Unknown]
  - Incorrect dose administered [Not Recovered/Not Resolved]
  - Hypersensitivity [Recovered/Resolved]
  - Skin mass [Unknown]

NARRATIVE: CASE EVENT DATE: 2014
